FAERS Safety Report 18131449 (Version 1)
Quarter: 2020Q3

REPORT INFORMATION
  Report Type: Spontaneous
  Country: PT (occurrence: PT)
  Receive Date: 20200810
  Receipt Date: 20200810
  Transmission Date: 20201103
  Serious: Yes (Hospitalization, Other)
  Sender: FDA-Public Use
  Company Number: PT-CASPER PHARMA LLC-2020CAS000398

PATIENT
  Age: 64 Year
  Sex: Male

DRUGS (1)
  1. PENICILLIN G BENZATHINE [Suspect]
     Active Substance: PENICILLIN G BENZATHINE
     Indication: SYPHILIS
     Dosage: 2,400,000 UNITS
     Route: 030

REACTIONS (1)
  - Embolia cutis medicamentosa [Recovered/Resolved]
